FAERS Safety Report 4636072-9 (Version None)
Quarter: 2005Q2

REPORT INFORMATION
  Report Type: 
  Country: None (occurrence: None)
  Receive Date: 20050415
  Receipt Date: 20050404
  Transmission Date: 20051028
  Serious: Yes (Hospitalization)
  Sender: FDA-Public Use
  Company Number: US-BRISTOL-MYERS SQUIBB COMPANY-12920948

PATIENT
  Age: 79 Year
  Sex: Male
  Weight: 69 kg

DRUGS (9)
  1. CARBOPLATIN [Suspect]
     Indication: METASTATIC NEOPLASM
     Dosage: ADMINISTERED ON DAY 15
     Route: 042
     Dates: start: 20050107, end: 20050216
  2. PACLITAXEL [Suspect]
     Indication: METASTATIC NEOPLASM
     Dosage: ADMINISTERED ON DAY 15
     Route: 042
     Dates: start: 20050107, end: 20050216
  3. ETOPOSIDE [Suspect]
     Indication: METASTATIC NEOPLASM
     Dosage: ALTERNATING 50 MG AND 100 MG X2 DAYS
     Route: 048
     Dates: start: 20050107, end: 20050222
  4. FUROSEMIDE [Suspect]
     Indication: CARDIAC FAILURE CONGESTIVE
     Dates: start: 19900101
  5. CARVEDILOL [Suspect]
     Indication: CARDIAC FAILURE CONGESTIVE
     Dates: start: 20000101
  6. TAMSULOSIN [Concomitant]
     Indication: BENIGN PROSTATIC HYPERPLASIA
  7. DIGOXIN [Concomitant]
     Indication: ATRIAL FIBRILLATION
  8. WARFARIN SODIUM [Concomitant]
     Indication: ATRIAL FIBRILLATION
     Dates: start: 19950101
  9. ATORVASTATIN CALCIUM [Concomitant]
     Indication: HYPERCHOLESTEROLAEMIA
     Dates: start: 20000101

REACTIONS (2)
  - DEHYDRATION [None]
  - DIARRHOEA [None]
